FAERS Safety Report 8493728 (Version 2)
Quarter: 2012Q4

REPORT INFORMATION
  Report Type: Spontaneous
  Country: US (occurrence: None)
  Receive Date: 20120316
  Receipt Date: 20121001
  Transmission Date: 20130627
  Serious: Yes (Other)
  Sender: FDA-Public Use
  Company Number: 2012031062

PATIENT
  Sex: Male
  Weight: 33.11 kg

DRUGS (25)
  1. HIZENTRA [Suspect]
     Indication: IMMUNODEFICIENCY
     Dosage: 3 g 1x/week, 1 gm 5 ml vial; 15 ml in 3 sites over 1-2 hours Subcutaneous
     Dates: start: 20111027
  2. HIZENTRA [Suspect]
     Indication: CONGENITAL PNEUMONIA
     Dosage: 3 g 1x/week, 1 gm 5 ml vial; 15 ml in 3 sites over 1-2 hours Subcutaneous
     Dates: start: 20111027
  3. HIZENTRA [Suspect]
     Indication: LIVE BIRTH
     Dosage: 3 g 1x/week, 1 gm 5 ml vial; 15 ml in 3 sites over 1-2 hours Subcutaneous
     Dates: start: 20111027
  4. HIZENTRA [Suspect]
     Indication: IMMUNODEFICIENCY
     Dosage: 2 gm 10 ml vial Subcutaneous
     Dates: start: 20111027
  5. HIZENTRA [Suspect]
     Indication: CONGENITAL PNEUMONIA
     Dosage: 2 gm 10 ml vial Subcutaneous
     Dates: start: 20111027
  6. HIZENTRA [Suspect]
     Indication: LIVE BIRTH
     Dosage: 2 gm 10 ml vial Subcutaneous
     Dates: start: 20111027
  7. HIZENTRA [Suspect]
     Indication: IMMUNODEFICIENCY
     Dosage: 3 g 1x/week, ??-Aug-2012; 3 sites over 1-2 hours Subcutaneous
     Dates: start: 201208
  8. HIZENTRA [Suspect]
     Indication: CONGENITAL PNEUMONIA
     Dosage: 3 g 1x/week, ??-Aug-2012; 3 sites over 1-2 hours Subcutaneous
     Dates: start: 201208
  9. HIZENTRA [Suspect]
     Indication: LIVE BIRTH
     Dosage: 3 g 1x/week, ??-Aug-2012; 3 sites over 1-2 hours Subcutaneous
     Dates: start: 201208
  10. HIZENTRA [Suspect]
     Indication: IMMUNODEFICIENCY
     Dosage: 3 g 1x/week, ??-Aug-2012; 3 sites over 1-2 hours Subcutaneous
     Dates: start: 201208
  11. HIZENTRA [Suspect]
     Indication: CONGENITAL PNEUMONIA
     Dosage: 3 g 1x/week, ??-Aug-2012; 3 sites over 1-2 hours Subcutaneous
     Dates: start: 201208
  12. HIZENTRA [Suspect]
     Indication: LIVE BIRTH
     Dosage: 3 g 1x/week, ??-Aug-2012; 3 sites over 1-2 hours Subcutaneous
     Dates: start: 201208
  13. OXYGEN (OXYGEN) [Concomitant]
  14. XOPENEX [Concomitant]
  15. CARBATROL ER (CARBAMAZEPINE) [Concomitant]
  16. ACETAMINOPHEN [Concomitant]
  17. ADVAIR DISKUS [Concomitant]
  18. PREVACID [Concomitant]
  19. ZYRTEC (CETIRIZINE HYDROCHLORIDE) [Concomitant]
  20. VERAMYST (FLUTICASONE) [Concomitant]
  21. ENALAPRIL (ENALAPRIL) [Suspect]
  22. VITAMIN D (ERGOCALCIFEROL) [Concomitant]
  23. DIPHENHYDRAMINE (DIPHENHYDRAMINE) [Concomitant]
  24. LIDOCAINE (LIDOCAINE) [Concomitant]
  25. EPI-PEN (EPINEPHRINE HYDROCHLORIDE) [Concomitant]

REACTIONS (4)
  - Upper respiratory tract infection [None]
  - Pneumonia [None]
  - Maternal exposure during pregnancy [None]
  - Off label use [None]
